FAERS Safety Report 18390256 (Version 1)
Quarter: 2020Q4

REPORT INFORMATION
  Report Type: Spontaneous
  Country: US (occurrence: US)
  Receive Date: 20201015
  Receipt Date: 20201015
  Transmission Date: 20210114
  Serious: Yes (Hospitalization)
  Sender: FDA-Public Use
  Company Number: US-MALLINCKRODT-T202004979

PATIENT
  Age: 35 Year
  Sex: Female

DRUGS (2)
  1. HEPARIN [Suspect]
     Active Substance: HEPARIN SODIUM
     Indication: ANTICOAGULANT THERAPY
     Dosage: UNK
     Route: 065
  2. UVADEX [Suspect]
     Active Substance: METHOXSALEN
     Indication: CUTANEOUS T-CELL LYMPHOMA STAGE IV
     Dosage: UNK (EXTRACORPOREAL)
     Route: 050

REACTIONS (1)
  - Anaphylactic reaction [Recovered/Resolved]
